FAERS Safety Report 26039265 (Version 1)
Quarter: 2025Q4

REPORT INFORMATION
  Report Type: Spontaneous
  Country: EU (occurrence: EU)
  Receive Date: 20251113
  Receipt Date: 20251113
  Transmission Date: 20260118
  Serious: Yes (Hospitalization, Other)
  Sender: AUROBINDO
  Company Number: EU-LRB-01094888

PATIENT
  Age: 78 Year
  Sex: Female
  Weight: 68 kg

DRUGS (4)
  1. HYDROCHLOROTHIAZIDE [Suspect]
     Active Substance: HYDROCHLOROTHIAZIDE
     Indication: Hypertension
     Dosage: 1X PER DAG 1 STUK
     Route: 048
     Dates: start: 20220916, end: 20251022
  2. BROMAZEPAM [Concomitant]
     Active Substance: BROMAZEPAM
     Indication: Product used for unknown indication
     Dosage: TABLET, 12 MG, 1X PER DAG 1 STUK
     Route: 065
  3. LATANOPROST [Concomitant]
     Active Substance: LATANOPROST
     Indication: Product used for unknown indication
     Dosage: 50 MICROGRAM/MILLILITER
  4. BRINZOLAMIDE\TIMOLOL [Concomitant]
     Active Substance: BRINZOLAMIDE\TIMOLOL
     Indication: Product used for unknown indication
     Dosage: OOGDRUPPELS, 5/2 MG/ML (MILLIGRAM PER MILLILITER)

REACTIONS (2)
  - Hypokalaemia [Recovered/Resolved]
  - Fall [Recovered/Resolved]
